FAERS Safety Report 22053910 (Version 1)
Quarter: 2023Q1

REPORT INFORMATION
  Report Type: Spontaneous
  Country: US (occurrence: None)
  Receive Date: 20230301
  Receipt Date: 20230301
  Transmission Date: 20230418
  Serious: Yes (Disabling)
  Sender: FDA-Public Use
  Company Number: None

PATIENT
  Age: 43 Year
  Sex: Male
  Weight: 83 kg

DRUGS (1)
  1. KETAMINE [Suspect]
     Active Substance: KETAMINE
     Indication: Anxiety
     Dates: start: 20220603, end: 20220805

REACTIONS (3)
  - Tinnitus [None]
  - Deafness [None]
  - Hyperacusis [None]

NARRATIVE: CASE EVENT DATE: 20220805
